FAERS Safety Report 24216936 (Version 1)
Quarter: 2024Q3

REPORT INFORMATION
  Report Type: Spontaneous
  Country: US (occurrence: US)
  Receive Date: 20240816
  Receipt Date: 20240816
  Transmission Date: 20241016
  Serious: No
  Sender: SANOFI AVENTIS
  Company Number: US-SA-2023MK000091

PATIENT
  Age: 70 Year
  Sex: Male

DRUGS (1)
  1. AFREZZA [Suspect]
     Active Substance: INSULIN HUMAN
     Indication: Product used for unknown indication
     Dosage: NOT REPORTED

REACTIONS (1)
  - Asthenia [Unknown]
